FAERS Safety Report 17287576 (Version 2)
Quarter: 2020Q1

REPORT INFORMATION
  Report Type: Spontaneous
  Country: US (occurrence: US)
  Receive Date: 20200120
  Receipt Date: 20200128
  Transmission Date: 20200409
  Serious: Yes (Life-Threatening, Hospitalization, Other)
  Sender: FDA-Public Use
  Company Number: US-AUROBINDO-AUR-APL-2020-002603

PATIENT
  Age: 25 Year
  Sex: Male

DRUGS (2)
  1. METHADONE [Concomitant]
     Active Substance: METHADONE HYDROCHLORIDE
     Indication: ABDOMINAL PAIN
     Dosage: UNK
     Route: 065
  2. OXYCODONE TABLET [Suspect]
     Active Substance: OXYCODONE
     Indication: PRODUCT USED FOR UNKNOWN INDICATION
     Dosage: EVENTUALLY ADMITTED TO CRUSHING OXYCODONE AND INJECTED
     Route: 065

REACTIONS (9)
  - Lung infiltration [Unknown]
  - Temporal arteritis [Unknown]
  - Septic shock [Unknown]
  - Acute respiratory distress syndrome [Unknown]
  - Streptococcal bacteraemia [Unknown]
  - Pulmonary granuloma [Unknown]
  - Right ventricular systolic pressure increased [Unknown]
  - Wrong technique in product usage process [Unknown]
  - Respiratory failure [Unknown]
